FAERS Safety Report 8698778 (Version 2)
Quarter: 2013Q2

REPORT INFORMATION
  Report Type: Spontaneous
  Country: US (occurrence: US)
  Receive Date: 20120802
  Receipt Date: 20130614
  Transmission Date: 20140414
  Serious: No
  Sender: FDA-Public Use
  Company Number: US-ASTRAZENECA-2012SE51461

PATIENT
  Age: 69 Year
  Sex: Female

DRUGS (2)
  1. NEXIUM [Suspect]
     Route: 048
  2. TOPROL XL [Suspect]
     Route: 048

REACTIONS (7)
  - Regurgitation [Unknown]
  - Hyperchlorhydria [Unknown]
  - Cardiac disorder [Unknown]
  - Heart rate increased [Unknown]
  - Eructation [Unknown]
  - Abdominal discomfort [Unknown]
  - Drug dose omission [Unknown]
